FAERS Safety Report 8430268-6 (Version None)
Quarter: 2012Q2

REPORT INFORMATION
  Report Type: 
  Country: None (occurrence: None)
  Receive Date: 20120612
  Receipt Date: 20120606
  Transmission Date: 20120825
  Serious: Yes (Hospitalization)
  Sender: FDA-Public Use
  Company Number: US-CELGENEUS-163-21880-12051247

PATIENT
  Sex: Female
  Weight: 42.676 kg

DRUGS (8)
  1. REVLIMID [Suspect]
     Indication: MYELODYSPLASTIC SYNDROME
     Dosage: 10 MILLIGRAM
     Route: 048
     Dates: start: 20120401
  2. NORCO [Concomitant]
     Indication: PAIN
     Route: 048
  3. LASIX [Concomitant]
     Route: 048
  4. ASCORBIC ACID [Concomitant]
     Route: 048
  5. BETHANECHOL [Concomitant]
     Route: 048
  6. OMEPRAZOLE [Concomitant]
     Route: 048
  7. REVLIMID [Suspect]
     Indication: MYELOFIBROSIS
  8. FLOMAX [Concomitant]
     Route: 048

REACTIONS (3)
  - SPLEEN DISORDER [None]
  - RENAL FAILURE ACUTE [None]
  - ANAEMIA [None]
